FAERS Safety Report 7509132-2 (Version None)
Quarter: 2011Q2

REPORT INFORMATION
  Report Type: 
  Country: None (occurrence: None)
  Receive Date: 20110527
  Receipt Date: 20110517
  Transmission Date: 20111010
  Serious: Yes (Life-Threatening, Hospitalization)
  Sender: FDA-Public Use
  Company Number: FR-JNJFOC-20110507435

PATIENT
  Sex: Female

DRUGS (12)
  1. NEXIUM [Concomitant]
     Route: 048
  2. BACTRIM [Suspect]
     Indication: PRODUCT USED FOR UNKNOWN INDICATION
     Route: 048
     Dates: start: 20110317
  3. OESTRODOSE [Concomitant]
     Route: 003
  4. VOGALENE [Concomitant]
     Indication: CHEMOTHERAPY
     Route: 048
     Dates: start: 20110317
  5. PREZISTA [Suspect]
     Indication: HIV INFECTION
     Route: 048
     Dates: end: 20110407
  6. TRABECTEDIN [Interacting]
     Indication: UTERINE LEIOMYOSARCOMA
     Route: 042
     Dates: start: 20110318, end: 20110318
  7. DEXAMETHASONE [Suspect]
     Indication: HIV INFECTION
     Route: 042
     Dates: start: 20110318, end: 20110319
  8. TRUVADA [Suspect]
     Indication: HIV INFECTION
     Route: 048
     Dates: end: 20110405
  9. NORVIR [Interacting]
     Indication: HIV INFECTION
     Route: 048
     Dates: end: 20110407
  10. ACETAMINOPHEN [Concomitant]
     Route: 048
  11. ONDANSETRON [Concomitant]
     Indication: HIV TEST POSITIVE
     Route: 048
     Dates: start: 20110318, end: 20110319
  12. EMEND [Concomitant]
     Indication: CHEMOTHERAPY
     Route: 048
     Dates: start: 20110318, end: 20110319

REACTIONS (8)
  - RENAL FAILURE [None]
  - RHABDOMYOLYSIS [None]
  - DRUG INTERACTION [None]
  - ABDOMINAL PAIN UPPER [None]
  - GENERAL PHYSICAL HEALTH DETERIORATION [None]
  - HEPATIC ENZYME INCREASED [None]
  - ANURIA [None]
  - PANCYTOPENIA [None]
